FAERS Safety Report 8078326-2 (Version None)
Quarter: 2012Q1

REPORT INFORMATION
  Report Type: 
  Country: None (occurrence: None)
  Receive Date: 20120123
  Receipt Date: 20120110
  Transmission Date: 20120608
  Serious: Yes (Life-Threatening)
  Sender: FDA-Public Use
  Company Number: 1000027206

PATIENT
  Age: 85 Year
  Sex: Male
  Weight: 72 kg

DRUGS (4)
  1. HIDROCLOROTIAZIDA (HYDROCHLOROTHIAZIDE) (TABLETS) (HYDROCHLOROTHIAZIDE [Concomitant]
  2. IRBESARTAN (IRBESARTAN) (IRBESARTAN) [Concomitant]
  3. ESCITALOPRAM OXALATE [Suspect]
     Indication: DEPRESSION
     Dosage: 10 MG (10 MG, 1 IN 1 D), ORAL
     Route: 048
     Dates: start: 20111223, end: 20111224
  4. LORAZEPAM (LORAZEPAM) (TABLETS) (LORAZEPAM) [Concomitant]

REACTIONS (6)
  - DIZZINESS [None]
  - ANXIETY [None]
  - SWOLLEN TONGUE [None]
  - DYSPNOEA [None]
  - OEDEMA MOUTH [None]
  - OROPHARYNGEAL PAIN [None]
